FAERS Safety Report 4796212-8 (Version None)
Quarter: 2005Q4

REPORT INFORMATION
  Report Type: 
  Country: None (occurrence: None)
  Receive Date: 20051007
  Receipt Date: 20050926
  Transmission Date: 20060501
  Serious: Yes (Hospitalization, Other)
  Sender: FDA-Public Use
  Company Number: 2005093459

PATIENT
  Age: 64 Year
  Sex: Male
  Weight: 101.1521 kg

DRUGS (17)
  1. ZOLOFT [Suspect]
     Indication: ANXIETY
     Dosage: 200 MG (100 MG, 2 IN 1 D), ORAL
     Route: 048
     Dates: start: 20040101
  2. ZOLOFT [Suspect]
     Indication: DEPRESSION
     Dosage: 200 MG (100 MG, 2 IN 1 D), ORAL
     Route: 048
     Dates: start: 20040101
  3. VYTORIN [Suspect]
     Indication: HYPERLIPIDAEMIA
     Dosage: 10/20 (1 IN 1 D), ORAL
     Route: 048
     Dates: end: 20050501
  4. HUMALOG [Concomitant]
  5. DILANTIN [Concomitant]
  6. PHENOBARBITAL TAB [Concomitant]
  7. ACCUPRIL [Concomitant]
  8. AVANDIA [Concomitant]
  9. NEURONTIN [Concomitant]
  10. NEXIUM [Concomitant]
  11. WARFARIN SODIUM [Concomitant]
  12. CELEBREX [Concomitant]
  13. NITROGLYCERIN [Concomitant]
  14. LASIX [Concomitant]
  15. POTASSIUM CHLORIDE [Concomitant]
  16. LOPRESSOR [Concomitant]
  17. INSULIN, REGULAR (INSULIN) [Concomitant]

REACTIONS (6)
  - CHEST PAIN [None]
  - DEEP VEIN THROMBOSIS [None]
  - MUSCLE SPASMS [None]
  - OSTEOARTHRITIS [None]
  - PAIN IN EXTREMITY [None]
  - RHABDOMYOLYSIS [None]
